FAERS Safety Report 13777529 (Version 3)
Quarter: 2020Q4

REPORT INFORMATION
  Report Type: Spontaneous
  Country: FR (occurrence: FR)
  Receive Date: 20170721
  Receipt Date: 20201020
  Transmission Date: 20210113
  Serious: Yes (Death, Other)
  Sender: FDA-Public Use
  Company Number: FR-PFIZER INC-2017314813

PATIENT
  Age: 72 Year
  Sex: Male

DRUGS (1)
  1. GEMCITABINE HYDROCHLORIDE. [Suspect]
     Active Substance: GEMCITABINE HYDROCHLORIDE
     Indication: LUNG NEOPLASM MALIGNANT
     Dosage: 1500 MG, WEEKLY (3 WEEKS OUT OF 4)
     Route: 042

REACTIONS (2)
  - Pulmonary toxicity [Fatal]
  - Pulmonary alveolar haemorrhage [Fatal]
